FAERS Safety Report 20815951 (Version 4)
Quarter: 2022Q4

REPORT INFORMATION
  Report Type: Spontaneous
  Country: US (occurrence: US)
  Receive Date: 20220511
  Receipt Date: 20221230
  Transmission Date: 20230113
  Serious: Yes (Other)
  Sender: FDA-Public Use
  Company Number: US-PFIZER INC-202101871830

PATIENT
  Age: 42 Year
  Sex: Female

DRUGS (1)
  1. XELJANZ [Suspect]
     Active Substance: TOFACITINIB CITRATE
     Indication: Rheumatoid arthritis
     Dosage: 5 MG, 2X/DAY
     Route: 048
     Dates: start: 202106, end: 2022

REACTIONS (12)
  - Arthralgia [Unknown]
  - Neuropathy peripheral [Unknown]
  - Drug ineffective [Unknown]
  - Fibromyalgia [Unknown]
  - Musculoskeletal stiffness [Unknown]
  - Condition aggravated [Unknown]
  - Sensitivity to weather change [Unknown]
  - Hepatic enzyme increased [Unknown]
  - Pain in extremity [Unknown]
  - Memory impairment [Unknown]
  - Peripheral swelling [Unknown]
  - Product dose omission issue [Unknown]

NARRATIVE: CASE EVENT DATE: 20210101
